FAERS Safety Report 4357387-8 (Version None)
Quarter: 2004Q2

REPORT INFORMATION
  Report Type: 
  Country: None (occurrence: None)
  Receive Date: 20040510
  Receipt Date: 20040423
  Transmission Date: 20050107
  Serious: Yes (Hospitalization)
  Sender: FDA-Public Use
  Company Number: DSA_24326_2004

PATIENT
  Age: 73 Year
  Sex: Male

DRUGS (6)
  1. CRINOREN [Suspect]
     Dosage: 5 MG Q DAY PO
     Route: 048
     Dates: end: 20030515
  2. ISCOVER [Suspect]
     Indication: MYOCARDIAL ISCHAEMIA
     Dosage: 75 MG Q DAY PO
     Route: 048
     Dates: start: 20030512, end: 20030515
  3. ATORVASTATIN CALCIUM [Concomitant]
  4. ATENOLOL [Concomitant]
  5. TORSEMIDE [Concomitant]
  6. GLYBURIDE [Concomitant]

REACTIONS (1)
  - AGRANULOCYTOSIS [None]
